FAERS Safety Report 4589431-7 (Version None)
Quarter: 2005Q1

REPORT INFORMATION
  Report Type: 
  Country: None (occurrence: None)
  Receive Date: 20050223
  Receipt Date: 20041223
  Transmission Date: 20050727
  Serious: Yes (Hospitalization)
  Sender: FDA-Public Use
  Company Number: 200419782US

PATIENT
  Sex: Female

DRUGS (8)
  1. KETEK [Suspect]
     Indication: UPPER RESPIRATORY TRACT INFECTION
     Dosage: DOSE: UNK
  2. BEXTRA [Concomitant]
     Indication: MYALGIA
     Dosage: DOSE: UNK
  3. TYLENOL (CAPLET) [Concomitant]
     Indication: MYALGIA
     Dosage: DOSE: UNK
  4. ANTIDEPRESSANTS [Concomitant]
     Dosage: DOSE: UNK
  5. VANCOMYCIN [Concomitant]
     Dosage: DOSE: UNK
     Dates: start: 20041216
  6. GENTAMYCIN SULFATE [Concomitant]
     Dosage: DOSE: UNK
     Dates: start: 20041216
  7. CLINDAMYCIN [Concomitant]
     Dosage: DOSE: UNK
     Dates: start: 20041216
  8. DOXYCYCLINE [Concomitant]
     Dosage: DOSE: UNK
     Dates: start: 20041216

REACTIONS (24)
  - ABDOMINAL DISTENSION [None]
  - ABDOMINAL PAIN UPPER [None]
  - BACTERIA BLOOD IDENTIFIED [None]
  - BACTERIA URINE IDENTIFIED [None]
  - BLOOD ALKALINE PHOSPHATASE INCREASED [None]
  - BLOOD BILIRUBIN INCREASED [None]
  - BLOOD CREATININE INCREASED [None]
  - CHOLELITHIASIS [None]
  - CHROMATURIA [None]
  - CONFUSIONAL STATE [None]
  - DIALYSIS [None]
  - FATIGUE [None]
  - GENERAL PHYSICAL HEALTH DETERIORATION [None]
  - HEPATIC ENZYME ABNORMAL [None]
  - HYPOTENSION [None]
  - JAUNDICE [None]
  - MULTI-ORGAN FAILURE [None]
  - NEPHRITIS INTERSTITIAL [None]
  - PRURITUS [None]
  - PYREXIA [None]
  - RASH [None]
  - RENAL FAILURE ACUTE [None]
  - SEPSIS [None]
  - WEIGHT INCREASED [None]
